FAERS Safety Report 13586300 (Version 2)
Quarter: 2017Q3

REPORT INFORMATION
  Report Type: Spontaneous
  Country: US (occurrence: US)
  Receive Date: 20170526
  Receipt Date: 20170711
  Transmission Date: 20171127
  Serious: Yes (Other)
  Sender: FDA-Public Use
  Company Number: US-BAYER-2017-091364

PATIENT
  Age: 69 Year
  Sex: Male
  Weight: 90.71 kg

DRUGS (1)
  1. BAYER ASPIRIN [Suspect]
     Active Substance: ASPIRIN
     Indication: PROPHYLAXIS
     Dosage: 1 DF, UNK
     Route: 048

REACTIONS (4)
  - Wound infection [Recovering/Resolving]
  - Wound haemorrhage [Recovered/Resolved]
  - Pain [Recovering/Resolving]
  - Product package associated injury [None]
